FAERS Safety Report 13611897 (Version 1)
Quarter: 2017Q2

REPORT INFORMATION
  Report Type: Spontaneous
  Country: VN (occurrence: VN)
  Receive Date: 20170605
  Receipt Date: 20170605
  Transmission Date: 20170830
  Serious: Yes (Hospitalization, Other)
  Sender: FDA-Public Use
  Company Number: VN-ROCHE-1939692

PATIENT
  Age: 55 Year
  Sex: Male

DRUGS (4)
  1. GABAPENTIN. [Suspect]
     Active Substance: GABAPENTIN
     Indication: PALLIATIVE CARE
     Route: 065
  2. ZOMETA [Concomitant]
     Active Substance: ZOLEDRONIC ACID
     Indication: PALLIATIVE CARE
     Route: 065
     Dates: start: 2016
  3. XELODA [Suspect]
     Active Substance: CAPECITABINE
     Indication: RECTAL CANCER METASTATIC
     Dosage: 8 CYCLES
     Route: 065
     Dates: start: 2015
  4. MORPHIN [Concomitant]
     Active Substance: MORPHINE
     Indication: PALLIATIVE CARE
     Route: 065
     Dates: start: 2016

REACTIONS (3)
  - Inflammation [Recovered/Resolved]
  - Ill-defined disorder [Recovered/Resolved]
  - Arteriosclerosis [Unknown]
